FAERS Safety Report 5769052-0 (Version None)
Quarter: 2008Q2

REPORT INFORMATION
  Report Type: 
  Country: None (occurrence: None)
  Receive Date: 20080612
  Receipt Date: 20080317
  Transmission Date: 20081010
  Serious: No
  Sender: FDA-Public Use
  Company Number: US-ABBOTT-08P-163-0443433-00

PATIENT
  Sex: Female
  Weight: 71.732 kg

DRUGS (21)
  1. HUMIRA [Suspect]
     Indication: RHEUMATOID ARTHRITIS
     Route: 058
     Dates: start: 20060101
  2. PREDNISONE TAB [Concomitant]
     Indication: RHEUMATOID ARTHRITIS
  3. ZOLPIDEM TARTRATE [Concomitant]
     Indication: SLEEP DISORDER
  4. TEMAZEPAM [Concomitant]
     Indication: SLEEP DISORDER
  5. HYDROXYCHLOROQUINE SULFATE [Concomitant]
     Indication: RHEUMATOID ARTHRITIS
  6. POTASSIUM CHLORIDE [Concomitant]
     Indication: DRUG USE FOR UNKNOWN INDICATION
  7. FUROSEMIDE [Concomitant]
     Indication: FLUID RETENTION
  8. FLUTICASONE PROPIONATE [Concomitant]
     Indication: ASTHMA
  9. SALBUTAMOL SULFATE [Concomitant]
     Indication: ASTHMA
     Dosage: SPRAY
  10. NORTRIPTYLINE HCL [Concomitant]
     Indication: DEPRESSION
  11. LEVOSALBUTAMOL [Concomitant]
     Indication: ASTHMA
     Dosage: NEBULIZER
  12. PRAVASTATIN SODIUM [Concomitant]
     Indication: BLOOD CHOLESTEROL INCREASED
  13. VENLAFAXINE HCL [Concomitant]
     Indication: DEPRESSION
  14. MONTELUKAST SODIUM [Concomitant]
     Indication: ASTHMA
  15. SUCRALFATE [Concomitant]
     Indication: GASTROOESOPHAGEAL REFLUX DISEASE
  16. SALFALATE [Concomitant]
     Indication: ARTHRITIS
  17. ALENDRONATE SODIUM [Concomitant]
     Indication: OSTEOPOROSIS
  18. ERGOCALCIFEROL [Concomitant]
     Indication: VITAMIN SUPPLEMENTATION
  19. PANTOPRAZOLE [Concomitant]
     Indication: GASTROOESOPHAGEAL REFLUX DISEASE
  20. ASPIRIN [Concomitant]
     Indication: ANTICOAGULANT THERAPY
  21. CALCIUM WITH VITAMIN D [Concomitant]
     Indication: DRUG USE FOR UNKNOWN INDICATION

REACTIONS (2)
  - CANDIDIASIS [None]
  - FUNGAL INFECTION [None]
